FAERS Safety Report 5720304-X (Version None)
Quarter: 2008Q2

REPORT INFORMATION
  Report Type: 
  Country: None (occurrence: None)
  Receive Date: 20080428
  Receipt Date: 20080416
  Transmission Date: 20081010
  Serious: Yes (Hospitalization)
  Sender: FDA-Public Use
  Company Number: ES-PFIZER INC-2008026618

PATIENT
  Sex: Female
  Weight: 56 kg

DRUGS (4)
  1. SU-011,248 [Suspect]
     Indication: BREAST CANCER
     Route: 048
  2. CAPECITABINE [Suspect]
     Indication: BREAST CANCER
     Route: 048
     Dates: start: 20071004, end: 20080206
  3. VALS [Concomitant]
  4. NEXIUM [Concomitant]

REACTIONS (8)
  - ALANINE AMINOTRANSFERASE INCREASED [None]
  - ASPARTATE AMINOTRANSFERASE INCREASED [None]
  - BLOOD LACTATE DEHYDROGENASE INCREASED [None]
  - DISEASE PROGRESSION [None]
  - DISORIENTATION [None]
  - ESCHERICHIA URINARY TRACT INFECTION [None]
  - GAIT DISTURBANCE [None]
  - JAUNDICE [None]
